FAERS Safety Report 7331625-1 (Version None)
Quarter: 2011Q1

REPORT INFORMATION
  Report Type: 
  Country: None (occurrence: None)
  Receive Date: 20110228
  Receipt Date: 20110228
  Transmission Date: 20110831
  Serious: Yes (Hospitalization)
  Sender: FDA-Public Use
  Company Number: None

PATIENT
  Age: 38 Year
  Sex: Female
  Weight: 107 kg

DRUGS (1)
  1. LUMIZYME [Suspect]
     Indication: GLYCOGEN STORAGE DISEASE TYPE II
     Dosage: 2150 MG Q2WEEKS IV INFUSION
     Route: 042
     Dates: start: 20101029, end: 20110105

REACTIONS (3)
  - SYNCOPE [None]
  - BLOOD PRESSURE DECREASED [None]
  - FLUSHING [None]
